FAERS Safety Report 7388033-7 (Version None)
Quarter: 2011Q2

REPORT INFORMATION
  Report Type: 
  Country: None (occurrence: None)
  Receive Date: 20110401
  Receipt Date: 20110328
  Transmission Date: 20111010
  Serious: No
  Sender: FDA-Public Use
  Company Number: US-PFIZER INC-2011068873

PATIENT
  Sex: Male
  Weight: 107.3 kg

DRUGS (1)
  1. CAVERJECT [Suspect]
     Indication: ERECTILE DYSFUNCTION
     Dosage: 40 MCG, AS NEEDED
     Route: 017

REACTIONS (1)
  - DRUG INEFFECTIVE [None]
